FAERS Safety Report 6504286-9 (Version None)
Quarter: 2009Q4

REPORT INFORMATION
  Report Type: 
  Country: None (occurrence: None)
  Receive Date: 20091217
  Receipt Date: 20091208
  Transmission Date: 20100525
  Serious: Yes (Other)
  Sender: FDA-Public Use
  Company Number: US-WATSON-2009-10579

PATIENT
  Age: 42 Year
  Sex: Female

DRUGS (3)
  1. TRIVORA 28 (EE/LEVO) (0.03/0.05;0.04/0.075;0.03/0.125) (WATSON) [Suspect]
     Indication: CONTRACEPTION
     Dosage: 1 TABLET, DAILY
     Route: 048
     Dates: start: 20080101, end: 20091208
  2. MULTIVITAMIN                       /00831701/ [Concomitant]
     Indication: SUPPLEMENTATION THERAPY
     Dosage: 1 TABLET, DAILY
     Route: 048
  3. LEVOTHYROXINE SODIUM [Concomitant]
     Indication: THYROID DISORDER
     Dosage: 112 MCG, DAILY
     Route: 048
     Dates: start: 20080101

REACTIONS (3)
  - HEPATIC ENZYME INCREASED [None]
  - LIBIDO DECREASED [None]
  - RENAL FAILURE [None]
